FAERS Safety Report 8698245 (Version 2)
Quarter: 2013Q4

REPORT INFORMATION
  Report Type: Spontaneous
  Country: US (occurrence: US)
  Receive Date: 20120802
  Receipt Date: 20131101
  Transmission Date: 20140711
  Serious: Yes (Other)
  Sender: FDA-Public Use
  Company Number: US-009507513-1207USA011404

PATIENT
  Age: 88 Year
  Sex: Male

DRUGS (4)
  1. VYTORIN [Suspect]
     Dosage: UNK
     Route: 048
  2. ACEON [Suspect]
     Dosage: 4 MG, QD
     Route: 048
  3. ACEON [Suspect]
     Dosage: 1 DF, QOD
     Route: 048
  4. CORDARONE [Suspect]
     Dosage: UNK DF, UNK
     Route: 048

REACTIONS (3)
  - Alanine aminotransferase increased [Unknown]
  - Gamma-glutamyltransferase increased [Unknown]
  - Aspartate aminotransferase increased [Unknown]
